FAERS Safety Report 9325849 (Version 1)
Quarter: 2013Q2

REPORT INFORMATION
  Report Type: Spontaneous
  Country: US (occurrence: None)
  Receive Date: 20130603
  Receipt Date: 20130603
  Transmission Date: 20140414
  Serious: Yes (Other)
  Sender: FDA-Public Use
  Company Number: None

PATIENT
  Age: 45 Year
  Sex: Male
  Weight: 95.71 kg

DRUGS (1)
  1. WAL-PROFEN D COLD AND SINUS [Suspect]
     Indication: NASAL CONGESTION
     Route: 048
     Dates: start: 20130530, end: 20130531

REACTIONS (1)
  - Product counterfeit [None]
